FAERS Safety Report 16417435 (Version 2)
Quarter: 2019Q2

REPORT INFORMATION
  Report Type: Spontaneous
  Country: NL (occurrence: NL)
  Receive Date: 20190611
  Receipt Date: 20190619
  Transmission Date: 20190711
  Serious: Yes (Death, Life-Threatening)
  Sender: FDA-Public Use
  Company Number: NL-MYLANLABS-2019M1054492

PATIENT
  Age: 65 Year
  Sex: Male
  Weight: 70 kg

DRUGS (14)
  1. AZATHIOPRINE. [Suspect]
     Active Substance: AZATHIOPRINE
     Indication: RHEUMATOID ARTHRITIS
     Dosage: 25 MILLIGRAM, BID (2X DAAGS 25 MG)
     Route: 048
     Dates: start: 20181029, end: 20181111
  2. ALENDRONINEZUUR [Concomitant]
     Active Substance: ALENDRONIC ACID
     Dosage: 70 MILLIGRAM, QW,70 MG, 1X PER WEEK
     Route: 048
  3. METFORMINE                         /00082701/ [Concomitant]
     Active Substance: METFORMIN HYDROCHLORIDE
     Dosage: 850 MILLIGRAM, Q8H,850 MG, 3X DAAGS MET DE MAALTIJD
  4. ACETYLSALICYLZUUR [Concomitant]
     Active Substance: ASPIRIN
     Dosage: 1 DOSAGE FORM, QD,1X DAAGS
  5. BENEPALI [Concomitant]
     Active Substance: ETANERCEPT
     Dosage: 50 MILLIGRAM, QW,50 MG, 1X PER WEEK
     Route: 058
  6. OMEPRAZOL                          /00661201/ [Concomitant]
     Active Substance: OMEPRAZOLE
     Dosage: 1 DOSAGE FORM, QD,1X DAAGS
     Route: 048
  7. GLICLAZIDE [Concomitant]
     Active Substance: GLICLAZIDE
     Dosage: 80 MILLIGRAM, BID,80 MG, 2X DAAGS MET DE MAALTIJD
  8. PREDNISOLON                        /00016201/ [Concomitant]
     Active Substance: PREDNISOLONE
     Dosage: 1 DOSAGE FORM, QD,1X DAAGS
     Route: 048
  9. FOLIUMZUUR [Concomitant]
     Active Substance: FOLIC ACID
     Dosage: 10 MILLIGRAM, QW,10 MG, 1X PER WEEK
     Route: 048
  10. SIMVASTATINE [Concomitant]
     Active Substance: SIMVASTATIN
     Dosage: 40 MILLIGRAM, QD,40 MG, 1X DAAGS VOOR DE NACHT
  11. CALCI CHEW D3 [Concomitant]
     Active Substance: CALCIUM CARBONATE\CHOLECALCIFEROL
     Dosage: 1 DOSAGE FORM, QD,1 TABLET, 1X DAAGS
     Route: 048
  12. METHOTREXATE (METHOTREXATE SODIUM) [Concomitant]
     Active Substance: METHOTREXATE SODIUM
     Dosage: 15 MILLIGRAM, QW,15 MG, 1X PER WEEK
     Route: 058
     Dates: start: 201608
  13. PLAQUENIL SULFATE [Concomitant]
     Active Substance: HYDROXYCHLOROQUINE SULFATE
     Dosage: 200 MILLIGRAM, QD,200 MG, 1X DAAGS
     Route: 048
     Dates: start: 201611
  14. INSULATARD                         /01223407/ [Concomitant]
     Dosage: 32 INTERNATIONAL UNIT, QD,1X DAAGS 32 IE

REACTIONS (1)
  - Respiratory failure [Fatal]

NARRATIVE: CASE EVENT DATE: 20181110
